FAERS Safety Report 13397208 (Version 1)
Quarter: 2017Q2

REPORT INFORMATION
  Report Type: Report from Study
  Country: CA (occurrence: CA)
  Receive Date: 20170403
  Receipt Date: 20170403
  Transmission Date: 20170830
  Serious: Yes (Hospitalization, Congenital Anomaly, Other)
  Sender: FDA-Public Use
  Company Number: CA-PFIZER INC-CA-WYE-H09769909

PATIENT
  Sex: Male

DRUGS (2)
  1. VENLAFAXINE HCL [Suspect]
     Active Substance: VENLAFAXINE HYDROCHLORIDE
     Indication: ANTIDEPRESSANT THERAPY
     Dosage: 300 MG, DAILY
     Route: 064
  2. AMITRIPTYLINE [Concomitant]
     Active Substance: AMITRIPTYLINE
     Dosage: 70 MG, UNK
     Route: 064

REACTIONS (12)
  - Drug withdrawal syndrome neonatal [Recovered/Resolved]
  - Hyperreflexia [Recovered/Resolved]
  - Tremor neonatal [Recovered/Resolved]
  - Maternal exposure during pregnancy [Recovered/Resolved]
  - Premature baby [Recovered/Resolved]
  - Dyskinesia neonatal [Recovered/Resolved]
  - Poor quality sleep [Recovered/Resolved]
  - Neonatal respiratory distress syndrome [Recovered/Resolved]
  - Agitation neonatal [Recovered/Resolved]
  - Diarrhoea neonatal [Recovered/Resolved]
  - Congenital hydronephrosis [Recovered/Resolved]
  - Neonatal tachypnoea [Recovered/Resolved]
